FAERS Safety Report 24121011 (Version 4)
Quarter: 2025Q2

REPORT INFORMATION
  Report Type: Spontaneous
  Country: US (occurrence: US)
  Receive Date: 20240722
  Receipt Date: 20250604
  Transmission Date: 20250717
  Serious: No
  Sender: PFIZER
  Company Number: US-PFIZER INC-202400219167

PATIENT
  Age: 13 Year
  Sex: Female

DRUGS (3)
  1. LITFULO [Suspect]
     Active Substance: RITLECITINIB TOSYLATE
     Indication: Alopecia areata
     Dosage: 50 MG, DAILY
     Route: 048
     Dates: start: 20240106
  2. CLOTRIMAZOLE [Concomitant]
     Active Substance: CLOTRIMAZOLE
  3. MINOXIDIL [Concomitant]
     Active Substance: MINOXIDIL

REACTIONS (3)
  - Drug ineffective [Recovering/Resolving]
  - Alopecia [Unknown]
  - Condition aggravated [Unknown]
